FAERS Safety Report 20579846 (Version 1)
Quarter: 2022Q1

REPORT INFORMATION
  Report Type: Spontaneous
  Country: CA (occurrence: CA)
  Receive Date: 20220310
  Receipt Date: 20220310
  Transmission Date: 20220424
  Serious: Yes (Life-Threatening, Hospitalization, Other)
  Sender: FDA-Public Use
  Company Number: CA-PFIZER INC-202200358495

PATIENT
  Age: 1 Year
  Sex: Female

DRUGS (5)
  1. CYTARABINE [Suspect]
     Active Substance: CYTARABINE
     Indication: Acute lymphocytic leukaemia
     Dosage: 30 MG, SINGLE
     Route: 037
  2. PEGASPARGASE [Suspect]
     Active Substance: PEGASPARGASE
     Indication: Acute lymphocytic leukaemia
     Dosage: 1125 IU, SINGLE
     Route: 042
  3. DEXAMETHASONE [Concomitant]
     Active Substance: DEXAMETHASONE
     Dosage: UNK
  4. METHOTREXATE [Concomitant]
     Active Substance: METHOTREXATE
     Dosage: UNK
  5. VINCRISTINE SULFATE [Concomitant]
     Active Substance: VINCRISTINE SULFATE
     Dosage: UNK

REACTIONS (1)
  - Febrile neutropenia [Recovering/Resolving]
